FAERS Safety Report 5815044-2 (Version None)
Quarter: 2008Q3

REPORT INFORMATION
  Report Type: 
  Country: None (occurrence: None)
  Receive Date: 20080718
  Receipt Date: 20080716
  Transmission Date: 20090109
  Serious: Yes (Other)
  Sender: FDA-Public Use
  Company Number: B0529386A

PATIENT
  Sex: Female

DRUGS (3)
  1. REQUIP [Suspect]
     Indication: DRUG USE FOR UNKNOWN INDICATION
     Route: 048
  2. UNSPECIFIED DRUG [Concomitant]
     Route: 048
  3. UNSPECIFIED DRUG [Concomitant]
     Route: 048

REACTIONS (2)
  - DIZZINESS [None]
  - SUDDEN ONSET OF SLEEP [None]
